FAERS Safety Report 26200553 (Version 1)
Quarter: 2025Q4

REPORT INFORMATION
  Report Type: Spontaneous
  Country: JP (occurrence: JP)
  Receive Date: 20251225
  Receipt Date: 20251225
  Transmission Date: 20260117
  Serious: Yes (Hospitalization)
  Sender: JOHNSON AND JOHNSON
  Company Number: JP-TANABE_PHARMA-MTPC2025-0022523

PATIENT
  Age: 62 Year
  Sex: Female

DRUGS (1)
  1. REMICADE [Suspect]
     Active Substance: INFLIXIMAB
     Indication: Colitis ulcerative

REACTIONS (6)
  - Melaena [Recovering/Resolving]
  - Pulmonary artery thrombosis [Recovering/Resolving]
  - Anaemia [Recovering/Resolving]
  - Guillain-Barre syndrome [Recovering/Resolving]
  - Intestinal obstruction [Recovering/Resolving]
  - Post procedural infection [Recovering/Resolving]
